FAERS Safety Report 17166273 (Version 5)
Quarter: 2021Q3

REPORT INFORMATION
  Report Type: Spontaneous
  Country: FR (occurrence: FR)
  Receive Date: 20191217
  Receipt Date: 20210716
  Transmission Date: 20211014
  Serious: Yes (Hospitalization, Other)
  Sender: FDA-Public Use
  Company Number: FR-PFIZER INC-2019534734

PATIENT
  Age: 72 Year
  Sex: Male

DRUGS (4)
  1. DOLUTEGRAVIR + RILPIVIRINE [Interacting]
     Active Substance: DOLUTEGRAVIR SODIUM\RILPIVIRINE HYDROCHLORIDE
     Indication: HIV INFECTION
     Dosage: 1 DF, QD(1 DF, 50 MG/25MG DAILY  )
     Route: 065
  2. METFORMIN [Interacting]
     Active Substance: METFORMIN HYDROCHLORIDE
     Indication: TYPE 2 DIABETES MELLITUS
     Dosage: 1000 MG
     Route: 065
  3. IBUPROFEN. [Suspect]
     Active Substance: IBUPROFEN
     Indication: PRODUCT USED FOR UNKNOWN INDICATION
     Dosage: UNK
     Route: 065
  4. METFORMIN [Interacting]
     Active Substance: METFORMIN HYDROCHLORIDE
     Dosage: 2000 MG, QD(1000 MG TWICE DAILY (IN THE MORNING AND EVENING))
     Route: 065

REACTIONS (7)
  - Vomiting [Unknown]
  - Acute kidney injury [Unknown]
  - Abdominal pain [Unknown]
  - Lactic acidosis [Unknown]
  - Drug interaction [Unknown]
  - Dehydration [Unknown]
  - Glomerular filtration rate decreased [Unknown]
